FAERS Safety Report 7101860-6 (Version None)
Quarter: 2010Q4

REPORT INFORMATION
  Report Type: 
  Country: None (occurrence: None)
  Receive Date: 20101108
  Receipt Date: 20101025
  Transmission Date: 20110411
  Serious: Yes (Other)
  Sender: FDA-Public Use
  Company Number: 2010AP002267

PATIENT
  Age: 69 Year
  Sex: Female

DRUGS (3)
  1. PRAVASTATIN SODIUM [Suspect]
     Indication: HYPERLIPIDAEMIA
     Dosage: 10 MG; QD PO
     Route: 048
     Dates: start: 20100906
  2. PRAVASTATIN SODIUM [Suspect]
     Indication: HYPERLIPIDAEMIA
     Dosage: 10 MG; QD PO
     Route: 048
     Dates: start: 20100906
  3. DICLOFENAC SODIUM [Concomitant]

REACTIONS (2)
  - FOREIGN BODY SENSATION IN EYES [None]
  - RESTLESS LEGS SYNDROME [None]
